FAERS Safety Report 4381976-8 (Version None)
Quarter: 2004Q2

REPORT INFORMATION
  Report Type: 
  Country: None (occurrence: None)
  Receive Date: 20040603
  Receipt Date: 20030610
  Transmission Date: 20050107
  Serious: Yes (Hospitalization)
  Sender: FDA-Public Use
  Company Number: 200315040US

PATIENT
  Age: 59 Year
  Sex: Female

DRUGS (8)
  1. LOVENOX [Suspect]
     Indication: DEEP VENOUS THROMBOSIS PROPHYLAXIS
     Dosage: 30 MG Q12H
     Dates: start: 20030521
  2. WARFARIN SODIUM [Concomitant]
  3. MEDROXYPROGESTERONE ACETATE, ESTROGENS CONJUGATED (PREMPRO) [Concomitant]
  4. CELEBREX [Concomitant]
  5. AMITRIPTYLINE HCL [Concomitant]
  6. XANAX [Concomitant]
  7. IRON [Concomitant]
  8. FOSAMAX [Concomitant]

REACTIONS (4)
  - DEEP VEIN THROMBOSIS [None]
  - DYSPNOEA [None]
  - PULMONARY EMBOLISM [None]
  - TACHYCARDIA [None]
